FAERS Safety Report 13684390 (Version 1)
Quarter: 2017Q2

REPORT INFORMATION
  Report Type: Spontaneous
  Country: US (occurrence: US)
  Receive Date: 20170623
  Receipt Date: 20170623
  Transmission Date: 20170830
  Serious: No
  Sender: FDA-Public Use
  Company Number: US-ASTELLAS-2016US022797

PATIENT
  Sex: Female

DRUGS (1)
  1. VESICARE [Suspect]
     Active Substance: SOLIFENACIN SUCCINATE
     Indication: HYPERTONIC BLADDER
     Route: 065
     Dates: start: 20160225, end: 20160415

REACTIONS (5)
  - Mucosal dryness [Unknown]
  - Thirst [Unknown]
  - Diverticulitis [Recovered/Resolved]
  - Drug ineffective [Unknown]
  - Gastrointestinal tract irritation [Unknown]
